FAERS Safety Report 5019014-6 (Version None)
Quarter: 2006Q2

REPORT INFORMATION
  Report Type: 
  Country: None (occurrence: None)
  Receive Date: 20060606
  Receipt Date: 20060529
  Transmission Date: 20061013
  Serious: Yes (Death)
  Sender: FDA-Public Use
  Company Number: IE-GLAXOSMITHKLINE-B0426032A

PATIENT
  Age: 70 Year
  Sex: Female

DRUGS (2)
  1. AUGMENTIN '125' [Suspect]
     Dosage: 375MG PER DAY
     Route: 048
  2. SEROXAT [Concomitant]

REACTIONS (3)
  - HEPATIC FAILURE [None]
  - HEPATITIS CHOLESTATIC [None]
  - THROMBOCYTOPENIA [None]
